FAERS Safety Report 4327532-9 (Version None)
Quarter: 2004Q1

REPORT INFORMATION
  Report Type: 
  Country: None (occurrence: None)
  Receive Date: 20040325
  Receipt Date: 20040316
  Transmission Date: 20041129
  Serious: No
  Sender: FDA-Public Use
  Company Number: 2004GB00668

PATIENT
  Age: 16 Year
  Sex: Female

DRUGS (4)
  1. SEROQUEL [Suspect]
     Dates: start: 20040101
  2. FLUOXETINE [Concomitant]
  3. OLANZAPINE [Concomitant]
  4. SERTRALINE [Concomitant]

REACTIONS (2)
  - DIPLEGIA [None]
  - PAIN IN EXTREMITY [None]
